FAERS Safety Report 4347988-5 (Version None)
Quarter: 2004Q1

REPORT INFORMATION
  Report Type: 
  Country: None (occurrence: None)
  Receive Date: 20040325
  Receipt Date: 20031113
  Transmission Date: 20041129
  Serious: No
  Sender: FDA-Public Use
  Company Number: USA030330417

PATIENT
  Age: 69 Year
  Sex: Female
  Weight: 62 kg

DRUGS (12)
  1. FORTEO [Suspect]
     Indication: OSTEOPOROSIS
     Dates: start: 20030101
  2. AVONEX (NITERFERON BETA) [Concomitant]
  3. BACLOFEN [Concomitant]
  4. CALCIUM [Concomitant]
  5. CELEBREX [Concomitant]
  6. ELAVIL [Concomitant]
  7. KLONOPIN [Concomitant]
  8. NEURONTIN [Concomitant]
  9. PEPCID [Concomitant]
  10. PREMPRO [Concomitant]
  11. SERZONE (NEFAZODINE HYDROCHLORIDE) [Concomitant]
  12. SYNTHROID [Concomitant]

REACTIONS (6)
  - DIARRHOEA [None]
  - FATIGUE [None]
  - FEELING ABNORMAL [None]
  - INFLUENZA [None]
  - INJECTION SITE HAEMORRHAGE [None]
  - PYREXIA [None]
